FAERS Safety Report 11404222 (Version 1)
Quarter: 2015Q3

REPORT INFORMATION
  Report Type: Spontaneous
  Country: US (occurrence: None)
  Receive Date: 20150820
  Receipt Date: 20150820
  Transmission Date: 20151125
  Serious: No
  Sender: FDA-Public Use
  Company Number: None

PATIENT
  Age: 82 Year
  Sex: Male
  Weight: 81.65 kg

DRUGS (5)
  1. VITAMINS D [Concomitant]
  2. VITAMINS E [Concomitant]
  3. FUROSEMIDE. [Concomitant]
     Active Substance: FUROSEMIDE
  4. POTASSIUM [Concomitant]
     Active Substance: POTASSIUM
  5. GAS RELIEF [Suspect]
     Active Substance: DIMETHICONE
     Indication: IRRITABLE BOWEL SYNDROME

REACTIONS (2)
  - Delirium [None]
  - Unevaluable event [None]

NARRATIVE: CASE EVENT DATE: 20150819
